FAERS Safety Report 19464537 (Version 2)
Quarter: 2021Q2

REPORT INFORMATION
  Report Type: Spontaneous
  Country: US (occurrence: US)
  Receive Date: 20210626
  Receipt Date: 20210626
  Transmission Date: 20210717
  Serious: No
  Sender: FDA-Public Use
  Company Number: US-SA-2021SA210121

PATIENT
  Age: 65 Year
  Sex: Male

DRUGS (2)
  1. DUPIXENT [Suspect]
     Active Substance: DUPILUMAB
     Indication: DERMATITIS ATOPIC
     Dosage: UNK UNK, QOW
     Route: 058
     Dates: start: 202105
  2. HAND SANITIZER NOS [Concomitant]
     Active Substance: ALCOHOL\AVOBENZONE\HOMOSALATE\OCTISALATE\OCTOCRYLENE\OXYBENZONE OR ALCOHOL\HOMOSALATE\OCTINOXATE\OCTISALATE\OXYBENZONE OR ALCOHOL\NAPHAZOLINE HYDROCHLORIDE\POLYETHYLENE GLYCOL 300 OR CITRIC ACID MONOHYDRATE\COCAMIDOPROPYL BETAINE OR ISOPROPYL ALCOHOL

REACTIONS (3)
  - Skin exfoliation [Unknown]
  - Injection site rash [Unknown]
  - Skin fissures [Unknown]
